FAERS Safety Report 18586720 (Version 2)
Quarter: 2020Q4

REPORT INFORMATION
  Report Type: Spontaneous
  Country: PL (occurrence: PL)
  Receive Date: 20201207
  Receipt Date: 20201214
  Transmission Date: 20210114
  Serious: Yes (Hospitalization)
  Sender: FDA-Public Use
  Company Number: PL-BAXTER-2020BAX024188

PATIENT
  Age: 60 Year
  Sex: Male

DRUGS (1)
  1. INJECTIO GLUCOSI 10% BAXTER [Suspect]
     Active Substance: DEXTROSE MONOHYDRATE
     Indication: PRODUCT USED FOR UNKNOWN INDICATION
     Route: 065

REACTIONS (2)
  - Symptom recurrence [Unknown]
  - Hypoglycaemia [Unknown]
